APPROVED DRUG PRODUCT: LEVOTHYROXINE SODIUM
Active Ingredient: LEVOTHYROXINE SODIUM
Strength: 0.15MG **See current Annual Edition, 1.8 Description of Special Situations, Levothyroxine Sodium
Dosage Form/Route: TABLET;ORAL
Application: A212399 | Product #009 | TE Code: AB1,AB2,AB3,AB4
Applicant: ACCORD HEALTHCARE INC
Approved: Oct 19, 2020 | RLD: No | RS: No | Type: RX